FAERS Safety Report 5127323-5 (Version None)
Quarter: 2006Q4

REPORT INFORMATION
  Report Type: 
  Country: None (occurrence: None)
  Receive Date: 20061013
  Receipt Date: 20061003
  Transmission Date: 20070319
  Serious: Yes (Other)
  Sender: FDA-Public Use
  Company Number: FR-ABBOTT-06P-056-0345784-00

PATIENT

DRUGS (2)
  1. MICROPAKINE GRANULE [Suspect]
     Indication: DRUG USE FOR UNKNOWN INDICATION
     Route: 048
     Dates: start: 20060901, end: 20060901
  2. MICROPAKINE GRANULE [Suspect]
     Route: 048
     Dates: end: 20060901

REACTIONS (5)
  - ACCIDENTAL OVERDOSE [None]
  - CONVULSION [None]
  - MEDICATION ERROR [None]
  - MENTAL IMPAIRMENT [None]
  - SOMNOLENCE [None]
